FAERS Safety Report 18340674 (Version 2)
Quarter: 2023Q4

REPORT INFORMATION
  Report Type: Spontaneous
  Country: FR (occurrence: FR)
  Receive Date: 20201002
  Receipt Date: 20231120
  Transmission Date: 20240110
  Serious: Yes (Hospitalization)
  Sender: FDA-Public Use
  Company Number: FR-AFSSAPS-RE20200765

PATIENT
  Age: 77 Year
  Sex: Female

DRUGS (10)
  1. ENALAPRIL [Suspect]
     Active Substance: ENALAPRIL
     Indication: Wrong patient received product
     Dosage: 10 MILLIGRAM (1 TOTAL)
     Route: 048
     Dates: start: 20200629, end: 20200629
  2. ENALAPRIL [Suspect]
     Active Substance: ENALAPRIL
     Indication: Product used for unknown indication
     Dosage: 10 MILLIGRAM, ONCE A DAY
     Route: 048
     Dates: start: 20200629, end: 20200629
  3. GLICLAZIDE [Suspect]
     Active Substance: GLICLAZIDE
     Indication: Wrong patient received product
     Dosage: 30 MILLIGRAM (1 TOTAL)
     Route: 048
     Dates: start: 20200629, end: 20200629
  4. FUROSEMIDE [Suspect]
     Active Substance: FUROSEMIDE
     Indication: Wrong patient received product
     Dosage: 20 MILLIGRAM (1 TOTAL)
     Route: 048
     Dates: start: 20200629, end: 20200629
  5. FUROSEMIDE [Suspect]
     Active Substance: FUROSEMIDE
     Indication: Product used for unknown indication
     Dosage: 10 MILLIGRAM, ONCE A DAY
     Route: 048
     Dates: start: 20200629, end: 20200629
  6. FUROSEMIDE [Suspect]
     Active Substance: FUROSEMIDE
     Indication: Product used for unknown indication
     Dosage: 500 MILLIGRAM, ONCE A DAY
     Route: 048
     Dates: start: 20200629, end: 20200629
  7. METFORMIN HYDROCHLORIDE [Suspect]
     Active Substance: METFORMIN HYDROCHLORIDE
     Indication: Product used for unknown indication
     Dosage: 500 MILLIGRAM, ONCE A DAY
     Route: 048
     Dates: start: 20200629, end: 20200629
  8. METFORMIN HYDROCHLORIDE [Suspect]
     Active Substance: METFORMIN HYDROCHLORIDE
     Indication: Product used for unknown indication
     Dosage: 10 MILLIGRAM, ONCE A DAY
     Route: 048
     Dates: start: 20200629, end: 20200629
  9. METFORMIN HYDROCHLORIDE [Suspect]
     Active Substance: METFORMIN HYDROCHLORIDE
     Indication: Wrong patient received product
     Dosage: 500 MILLIGRAM (1 TOTAL)
     Route: 048
     Dates: start: 20200629, end: 20200629
  10. URAPIDIL [Suspect]
     Active Substance: URAPIDIL
     Indication: Wrong patient received product
     Dosage: 30 MILLIGRAM (1 TOTAL)
     Route: 048
     Dates: start: 20200629, end: 20200629

REACTIONS (3)
  - Accidental overdose [Recovered/Resolved]
  - Agitation [Recovered/Resolved]
  - Wrong patient received product [Recovered/Resolved]

NARRATIVE: CASE EVENT DATE: 20200629
